FAERS Safety Report 4656830-4 (Version None)
Quarter: 2005Q2

REPORT INFORMATION
  Report Type: 
  Country: None (occurrence: None)
  Receive Date: 20050505
  Receipt Date: 20050425
  Transmission Date: 20051028
  Serious: Yes (Disabling)
  Sender: FDA-Public Use
  Company Number: 05P-056-0294760-00

PATIENT
  Age: 66 Year
  Sex: Female
  Weight: 60 kg

DRUGS (7)
  1. HUMIRA [Suspect]
     Indication: RHEUMATOID ARTHRITIS
     Dosage: 40 MG, 1 IN 14 D, SUBCUTANEOUS
     Route: 058
     Dates: start: 20040401, end: 20041201
  2. METHOTREXATE [Suspect]
     Indication: RHEUMATOID ARTHRITIS
     Dosage: 15 MG, 1 IN 1 WK, PER ORAL; GREATER THAN TWO YEARS
     Route: 048
  3. PREDNISONE [Concomitant]
  4. FOLIC ACID [Concomitant]
  5. PANTOPRAZOLE SODIUM [Concomitant]
  6. POTASSIUM CHLORIDE [Concomitant]
  7. DI-GESIC [Concomitant]

REACTIONS (3)
  - ANTIBODY TEST POSITIVE [None]
  - CHEST PAIN [None]
  - INTERSTITIAL LUNG DISEASE [None]
